FAERS Safety Report 11784783 (Version 6)
Quarter: 2016Q2

REPORT INFORMATION
  Report Type: Report from Study
  Country: CA (occurrence: CA)
  Receive Date: 20151130
  Receipt Date: 20160414
  Transmission Date: 20160815
  Serious: Yes (Life-Threatening)
  Sender: FDA-Public Use
  Company Number: CA-AMGEN-CANCT2015123258

PATIENT
  Age: 73 Year
  Sex: Male
  Weight: 73.4 kg

DRUGS (28)
  1. NIVOLUMAB [Suspect]
     Active Substance: NIVOLUMAB
     Indication: PRODUCT USED FOR UNKNOWN INDICATION
     Dosage: 197 MG, UNK
     Route: 065
     Dates: start: 20151021, end: 20151104
  2. FLEXERIL [Concomitant]
     Active Substance: CYCLOBENZAPRINE HYDROCHLORIDE
     Dosage: 5 MG, UNK
     Dates: start: 20150228
  3. VITAMIN B12 [Concomitant]
     Active Substance: CYANOCOBALAMIN
     Dosage: 1000 UNK, UNK
     Dates: start: 20141113
  4. OXYCODONE [Concomitant]
     Active Substance: OXYCODONE
     Dosage: 10 MG, UNK
     Dates: start: 20151008
  5. ATIVAN [Concomitant]
     Active Substance: LORAZEPAM
     Dosage: 0.5 MG, UNK
     Dates: start: 201501
  6. TYLENOL WITH CODEINE [Concomitant]
     Active Substance: ACETAMINOPHEN\CODEINE PHOSPHATE
     Dosage: 2 UNK, UNK
     Dates: start: 20150305
  7. AMOXI-CLAVULANICO [Concomitant]
     Active Substance: AMOXICILLIN\CLAVULANIC ACID
     Dosage: 875 MG, UNK
     Dates: start: 20151004
  8. PREGABALIN. [Concomitant]
     Active Substance: PREGABALIN
     Dosage: 100 MG, UNK
     Dates: start: 20150707
  9. VITAMIN D [Concomitant]
     Active Substance: CHOLECALCIFEROL
     Dosage: 1000 MUG, UNK
     Dates: start: 20141121
  10. NYSTATIN. [Concomitant]
     Active Substance: NYSTATIN
     Dosage: 4 MG, UNK
     Dates: start: 20150818, end: 20150822
  11. ONDANSETRON [Concomitant]
     Active Substance: ONDANSETRON
     Dosage: 16 MG, UNK
     Dates: start: 20141121
  12. DOCETAXEL. [Concomitant]
     Active Substance: DOCETAXEL
     Dosage: 135 MG, UNK
     Dates: start: 20150407, end: 20150924
  13. PEMETREXED [Concomitant]
     Active Substance: PEMETREXED
     Dosage: 915 MG, UNK
     Dates: start: 20141121
  14. IMOVANE [Concomitant]
     Active Substance: ZOPICLONE
     Dosage: 7.5 MG, UNK
     Dates: start: 201501
  15. ZOVIRAX [Concomitant]
     Active Substance: ACYCLOVIR
     Dosage: 1 UNK, UNK
     Dates: start: 20141218
  16. BUPRENORPHINE. [Concomitant]
     Active Substance: BUPRENORPHINE
     Dosage: 10 UNK, UNK
     Dates: start: 20151015, end: 20160310
  17. METOCLOPRAMIDE. [Concomitant]
     Active Substance: METOCLOPRAMIDE
     Dosage: 10 MG, UNK
     Dates: start: 20150212
  18. SENOKOT [Concomitant]
     Active Substance: SENNOSIDES
     Dosage: 10 MG, UNK
     Dates: start: 201503
  19. DEXAMETHASONE. [Concomitant]
     Active Substance: DEXAMETHASONE
     Dosage: 4 MG, UNK
     Dates: start: 20141121
  20. PANTOPRAZOLE [Concomitant]
     Active Substance: PANTOPRAZOLE SODIUM
     Dosage: 40 MG, UNK
     Dates: start: 20151008
  21. CARBOPLATIN. [Concomitant]
     Active Substance: CARBOPLATIN
     Dosage: 485 MG, UNK
     Dates: start: 20141121
  22. DILAUDID [Concomitant]
     Active Substance: HYDROMORPHONE HYDROCHLORIDE
     Dosage: 1 MG, UNK
     Dates: start: 20150609
  23. CLAVULANIC ACID [Concomitant]
     Active Substance: CLAVULANIC ACID
     Dosage: 125 MG, UNK
     Dates: start: 20151004
  24. DENOSUMAB [Suspect]
     Active Substance: DENOSUMAB
     Indication: NON-SMALL CELL LUNG CANCER
     Dosage: 120 MG, UNK
     Route: 065
     Dates: start: 20141121, end: 20150924
  25. CALCIUM [Concomitant]
     Active Substance: CALCIUM
     Dosage: 1000 MUG, UNK
     Dates: start: 20141121
  26. CLOXACILLIN [Concomitant]
     Active Substance: CLOXACILLIN
     Dosage: 1 UNK, UNK
     Dates: start: 20141109
  27. LACTULOSE. [Concomitant]
     Active Substance: LACTULOSE
     Dosage: 15 MG, UNK
     Dates: start: 201503
  28. AZITHROMYCIN ANHYDROUS. [Concomitant]
     Active Substance: AZITHROMYCIN ANHYDROUS
     Dosage: 250 MG, UNK
     Dates: start: 20151004, end: 20151008

REACTIONS (3)
  - Anaphylactic reaction [Recovered/Resolved]
  - Chills [Recovered/Resolved]
  - Tachycardia [Recovered/Resolved]

NARRATIVE: CASE EVENT DATE: 20151104
